APPROVED DRUG PRODUCT: HYDRALAZINE HYDROCHLORIDE
Active Ingredient: HYDRALAZINE HYDROCHLORIDE
Strength: 10MG
Dosage Form/Route: TABLET;ORAL
Application: A205236 | Product #001 | TE Code: AA
Applicant: SCIEGEN PHARMACEUTICALS INC
Approved: May 26, 2017 | RLD: No | RS: No | Type: RX